FAERS Safety Report 4336980-2 (Version None)
Quarter: 2004Q1

REPORT INFORMATION
  Report Type: 
  Country: None (occurrence: None)
  Receive Date: 20040329
  Receipt Date: 20040205
  Transmission Date: 20041129
  Serious: No
  Sender: FDA-Public Use
  Company Number: USA040258622

PATIENT
  Age: 9 Year
  Sex: Male

DRUGS (2)
  1. STRATTERA [Suspect]
     Indication: VISION BLURRED
     Dosage: 60 MG/IN THE EVENING
     Dates: start: 20030829, end: 20031112
  2. ADDERALL 10 [Concomitant]

REACTIONS (5)
  - ABNORMAL BEHAVIOUR [None]
  - AGITATION [None]
  - CRYING [None]
  - DEPRESSION SUICIDAL [None]
  - SUICIDAL IDEATION [None]
